FAERS Safety Report 5554973-4 (Version None)
Quarter: 2007Q4

REPORT INFORMATION
  Report Type: 
  Country: None (occurrence: None)
  Receive Date: 20071213
  Receipt Date: 20071206
  Transmission Date: 20080405
  Serious: Yes (Other)
  Sender: FDA-Public Use
  Company Number: US-JNJFOC-20071202402

PATIENT
  Sex: Male

DRUGS (10)
  1. MOTRIN [Suspect]
     Route: 048
  2. MOTRIN [Suspect]
     Indication: DRUG USE FOR UNKNOWN INDICATION
     Route: 048
  3. REVLIMID [Suspect]
     Dosage: 25 MG EVERY OTHER DAY
     Route: 048
  4. REVLIMID [Suspect]
     Dosage: 25 MG EVERY OTHER DAY
     Route: 048
  5. REVLIMID [Suspect]
     Indication: MULTIPLE MYELOMA
     Route: 048
  6. ALEVE [Suspect]
     Indication: DRUG USE FOR UNKNOWN INDICATION
     Route: 048
  7. DEXAMETHASONE TAB [Concomitant]
  8. OMEPRAZOLE [Concomitant]
  9. METHADONE HCL [Concomitant]
  10. ASPIRIN [Concomitant]

REACTIONS (7)
  - ATRIAL FIBRILLATION [None]
  - BLOOD CREATININE INCREASED [None]
  - LOBAR PNEUMONIA [None]
  - MUSCLE SPASMS [None]
  - PAIN IN EXTREMITY [None]
  - SINUS BRADYCARDIA [None]
  - SMALL INTESTINAL OBSTRUCTION [None]
